FAERS Safety Report 7676985-7 (Version None)
Quarter: 2011Q3

REPORT INFORMATION
  Report Type: 
  Country: None (occurrence: None)
  Receive Date: 20110811
  Receipt Date: 20110802
  Transmission Date: 20111222
  Serious: Yes (Hospitalization)
  Sender: FDA-Public Use
  Company Number: JP-ROCHE-637191

PATIENT
  Sex: Female
  Weight: 40 kg

DRUGS (25)
  1. CYCLOSPORINE [Suspect]
     Dosage: STOPPED DATE OF DRUG THERAPY- 2009
     Route: 048
     Dates: start: 20090216, end: 20090101
  2. CYCLOSPORINE [Suspect]
     Route: 048
     Dates: start: 20090223, end: 20100202
  3. SIMULECT [Concomitant]
     Dosage: ROUTE: INTRAVENOUS (NOT OTHERWISE SPECIFIED)
     Route: 042
     Dates: start: 20090218, end: 20090218
  4. SIMULECT [Concomitant]
     Dosage: ROUTE: INTRAVENOUS (NOT OTHERWISE SPECIFIED)
     Route: 042
     Dates: start: 20090222, end: 20090222
  5. SULFAMETHOXAZOLE [Concomitant]
     Dosage: NOTE: 1 TABLET, TWICE A DAY (MONDAY AND THURSDAY)
     Route: 048
     Dates: start: 20090323
  6. TRICHLORMETHIAZIDE [Concomitant]
     Route: 048
     Dates: start: 20090414
  7. NORVASC [Concomitant]
     Dosage: DRUG REPORTED AS NORVASC ( AMLODIPINE BESILATE)
     Route: 048
     Dates: start: 20090414
  8. MYCOPHENOLATE MOFETIL [Suspect]
     Dosage: START DATE- 2009 DOSE DECREASED
     Route: 048
     Dates: end: 20090420
  9. CYCLOSPORINE [Suspect]
     Route: 048
     Dates: start: 20090325
  10. ACETAMINOPHEN [Suspect]
     Indication: PAIN
     Dosage: TAKEN AS NEEDED. START DATE: 30 MARCH 2010
     Route: 048
  11. MYCOPHENOLATE MOFETIL [Suspect]
     Dosage: DOSE DECREASED
     Route: 048
     Dates: start: 20090428, end: 20090514
  12. MYCOPHENOLATE MOFETIL [Suspect]
     Route: 048
     Dates: start: 20090515
  13. SPANIDIN [Concomitant]
     Dosage: DRUG NAME REPORTED-  SPANIDIN (GUSPERIMUS HYDROCHLORIDE). DOSAGE IS UNCERTAIN
     Route: 041
     Dates: start: 20090220, end: 20090220
  14. TAGAMET [Concomitant]
     Route: 048
     Dates: start: 20090224
  15. EPINEPHRINE [Concomitant]
     Dosage: DRUG REPORTED- ADRENAL HORMONE PREPARATIONS. STOPED DATE- FEB 2009.  DOSAGE IS UNCERTAIN
     Route: 041
     Dates: start: 20090220
  16. FERROUS CITRATE [Concomitant]
     Route: 048
     Dates: start: 20101214
  17. MYCOPHENOLATE MOFETIL [Suspect]
     Dosage: DOSE DECREASED
     Route: 048
     Dates: start: 20090421, end: 20090427
  18. ZOVIRAX [Concomitant]
     Route: 048
     Dates: start: 20090323
  19. MS REISHIPPU [Concomitant]
     Dosage: ROUTE: TOPICAL AND FORM: TAPE
     Route: 050
     Dates: start: 20101102
  20. CYCLOSPORINE [Suspect]
     Route: 048
     Dates: start: 20100203
  21. MYCOPHENOLATE MOFETIL [Suspect]
     Dosage: STOPPED DATE OF DRUG- 2009
     Route: 048
     Dates: start: 20090218, end: 20090101
  22. METHYLPREDNISOLONE [Suspect]
     Dosage: START DATE: 04 MARCH 2009
     Route: 048
  23. SULFAMETHOXAZOLE [Concomitant]
     Dosage: DRUG REPORTED AS: BAKTAR(SULFAMETHOXAZOLE_TRIMETHOPRIM)
     Route: 048
  24. ALOSENN [Concomitant]
     Dosage: DRUG REPORTED AS  ALOSENN ( SENNA LEAF_ SENNA POD) DOSE FORM: GRANULATED POWDER
     Route: 048
     Dates: start: 20090318
  25. ASPIRIN [Concomitant]
     Dosage: DOSE FORM: ENTERIC COATING DRUG
     Route: 048
     Dates: start: 20090101

REACTIONS (19)
  - BACK PAIN [None]
  - RENAL ISCHAEMIA [None]
  - LIGAMENT SPRAIN [None]
  - CYTOMEGALOVIRUS INFECTION [None]
  - METRORRHAGIA [None]
  - VASCULAR INSUFFICIENCY [None]
  - ANAEMIA [None]
  - CONSTIPATION [None]
  - ANGIOPATHY [None]
  - URTICARIA [None]
  - VENTRICULAR EXTRASYSTOLES [None]
  - DYSURIA [None]
  - OEDEMA [None]
  - PROTHROMBIN TIME RATIO DECREASED [None]
  - CUSHINGOID [None]
  - HYPOGLYCAEMIA [None]
  - INCISION SITE PAIN [None]
  - HYPERTENSION [None]
  - HYPERLIPIDAEMIA [None]
